FAERS Safety Report 10410183 (Version 2)
Quarter: 2015Q1

REPORT INFORMATION
  Report Type: Report from Study
  Country: GB (occurrence: GB)
  Receive Date: 20140826
  Receipt Date: 20150225
  Transmission Date: 20150720
  Serious: Yes (Other)
  Sender: FDA-Public Use
  Company Number: GB-JNJFOC-20140820148

PATIENT
  Age: 77 Year
  Sex: Male

DRUGS (2)
  1. SIMPONI [Suspect]
     Active Substance: GOLIMUMAB
     Indication: PRODUCT USED FOR UNKNOWN INDICATION
     Route: 058
     Dates: end: 20140812
  2. SIMPONI [Suspect]
     Active Substance: GOLIMUMAB
     Indication: PRODUCT USED FOR UNKNOWN INDICATION
     Route: 058
     Dates: start: 20140814

REACTIONS (8)
  - Actinic keratosis [Unknown]
  - Musculoskeletal stiffness [Recovered/Resolved]
  - Synovectomy [Recovered/Resolved]
  - Surgery [Unknown]
  - Arthralgia [Recovered/Resolved]
  - Joint arthroplasty [Recovered/Resolved]
  - Skin cancer [Unknown]
  - Nodule [Recovered/Resolved]

NARRATIVE: CASE EVENT DATE: 20140710
